FAERS Safety Report 4616489-9 (Version None)
Quarter: 2005Q1

REPORT INFORMATION
  Report Type: 
  Country: None (occurrence: None)
  Receive Date: 20050318
  Receipt Date: 20050307
  Transmission Date: 20050727
  Serious: Yes (Other)
  Sender: FDA-Public Use
  Company Number: HQWYE882608MAR05

PATIENT
  Age: 26 Year
  Sex: Female
  Weight: 59.02 kg

DRUGS (6)
  1. PREMARIN [Suspect]
     Indication: OESTROGEN REPLACEMENT THERAPY
     Dosage: 1.25 MG DECREASED TO 0.9 MG THEN 0.625MG AND THEN INCREASED TO 0.9 MG DAILY OVER THE PAST YEAR, ORAL
     Route: 048
     Dates: start: 19790101
  2. TEGRETOL [Concomitant]
  3. KEPPRA [Concomitant]
  4. ZOLOFT [Concomitant]
  5. NEXIUM [Concomitant]
  6. CELEBREX [Concomitant]

REACTIONS (2)
  - COMPLEX PARTIAL SEIZURES [None]
  - GRAND MAL CONVULSION [None]
